FAERS Safety Report 7673222-4 (Version None)
Quarter: 2011Q3

REPORT INFORMATION
  Report Type: 
  Country: None (occurrence: None)
  Receive Date: 20110810
  Receipt Date: 20110802
  Transmission Date: 20111222
  Serious: Yes (Life-Threatening, Hospitalization)
  Sender: FDA-Public Use
  Company Number: JP-AMGEN-JPNSP2011038740

PATIENT
  Age: 78 Year
  Sex: Male
  Weight: 54 kg

DRUGS (8)
  1. PREDNISOLONE [Concomitant]
     Dosage: 1 MG, 1X/DAY
     Route: 048
  2. AMLODIPINE [Concomitant]
     Dosage: 5 MG, 1X/DAY
     Dates: start: 20090818
  3. RISEDRONATE SODIUM [Concomitant]
     Dosage: 17.5 MG, 1X/DAY
     Dates: start: 20090818
  4. OLOPATADINE HCL [Concomitant]
     Dosage: 10 MG, 2X/DAY
     Dates: start: 20101005
  5. ENBREL [Suspect]
     Dosage: 50 MG, WEEKLY
     Route: 058
     Dates: start: 20101102, end: 20101228
  6. ENBREL [Suspect]
     Dosage: 25 MG, 2X/WEEK
     Route: 058
     Dates: start: 20110118, end: 20110712
  7. ERYTHROCIN                         /00020901/ [Concomitant]
     Dosage: 200 MG, 1X/DAY
     Dates: start: 20090421
  8. ENBREL [Suspect]
     Indication: RHEUMATOID ARTHRITIS
     Dosage: 25 MG, 2X/WEEK
     Route: 058
     Dates: start: 20090408, end: 20101029

REACTIONS (1)
  - INTERSTITIAL LUNG DISEASE [None]
